FAERS Safety Report 4936891-5 (Version None)
Quarter: 2006Q1

REPORT INFORMATION
  Report Type: 
  Country: None (occurrence: None)
  Receive Date: 20060307
  Receipt Date: 20050303
  Transmission Date: 20060701
  Serious: Yes (Hospitalization, Disabling)
  Sender: FDA-Public Use
  Company Number: US-MERCK-0503USA00835

PATIENT
  Sex: Male
  Weight: 100 kg

DRUGS (3)
  1. VIOXX [Suspect]
     Indication: PAIN IN EXTREMITY
     Route: 048
     Dates: start: 20001001, end: 20011001
  2. TYLENOL (CAPLET) [Concomitant]
     Route: 065
  3. VIOXX [Suspect]
     Indication: BACK PAIN
     Route: 048
     Dates: start: 20001001, end: 20011001

REACTIONS (19)
  - ANGINA UNSTABLE [None]
  - ARRHYTHMIA [None]
  - ATRIAL FIBRILLATION [None]
  - ATRIAL TACHYCARDIA [None]
  - BACK INJURY [None]
  - BACK PAIN [None]
  - CEREBROVASCULAR ACCIDENT [None]
  - CORONARY ARTERY DISEASE [None]
  - DEPRESSION [None]
  - DILATATION VENTRICULAR [None]
  - HYPERLIPIDAEMIA [None]
  - HYPERTENSION [None]
  - INTRACARDIAC THROMBUS [None]
  - LIMB INJURY [None]
  - MEDICATION ERROR [None]
  - MYOCARDIAL INFARCTION [None]
  - PALPITATIONS [None]
  - PROSTATE EXAMINATION ABNORMAL [None]
  - SINUS BRADYCARDIA [None]
